FAERS Safety Report 12085738 (Version 1)
Quarter: 2016Q1

REPORT INFORMATION
  Report Type: Spontaneous
  Country: FR (occurrence: FR)
  Receive Date: 20160217
  Receipt Date: 20160217
  Transmission Date: 20160526
  Serious: Yes (Life-Threatening)
  Sender: FDA-Public Use
  Company Number: FR-SA-2016SA031190

PATIENT
  Age: 10 Year
  Sex: Male

DRUGS (18)
  1. COLIMYCINE [Suspect]
     Active Substance: COLISTIMETHATE SODIUM
     Route: 065
     Dates: start: 20160122
  2. INEXIUM [Suspect]
     Active Substance: ESOMEPRAZOLE
     Route: 065
     Dates: start: 20160130
  3. AMBISOME [Suspect]
     Active Substance: AMPHOTERICIN B
     Route: 065
     Dates: start: 20160201
  4. ZOVIRAX [Suspect]
     Active Substance: ACYCLOVIR
     Route: 065
     Dates: start: 20160122
  5. CIFLOX [Suspect]
     Active Substance: CIPROFLOXACIN
     Route: 065
     Dates: start: 20160203
  6. URSODEOXYCHOLIC ACID [Suspect]
     Active Substance: URSODIOL
     Route: 065
     Dates: start: 20160122
  7. LOVENOX [Suspect]
     Active Substance: ENOXAPARIN SODIUM
     Route: 058
     Dates: start: 20160122
  8. FORTUM [Suspect]
     Active Substance: CEFTAZIDIME
     Route: 065
     Dates: start: 20160124
  9. TARGOCID [Suspect]
     Active Substance: TEICOPLANIN
     Route: 042
     Dates: start: 20160129
  10. KEFORAL [Suspect]
     Active Substance: CEFAMANDOLE
     Route: 065
     Dates: start: 20160122
  11. ZOPHREN [Suspect]
     Active Substance: ONDANSETRON
     Route: 065
     Dates: start: 20160130
  12. TRIFLUCAN [Suspect]
     Active Substance: FLUCONAZOLE
     Route: 065
     Dates: start: 20160122
  13. NETROMICINE [Suspect]
     Active Substance: NETILMICIN SULFATE
     Route: 042
     Dates: start: 20160122
  14. COVERSYL [Concomitant]
     Active Substance: PERINDOPRIL
     Route: 065
  15. CLAIRYG [Suspect]
     Active Substance: HUMAN IMMUNOGLOBULIN G
     Route: 065
     Dates: start: 20160122, end: 20160122
  16. FUNGIZONE [Suspect]
     Active Substance: AMPHOTERICIN B
     Route: 065
     Dates: start: 20160122
  17. CICLOSPORIN [Suspect]
     Active Substance: CYCLOSPORINE
     Route: 065
     Dates: start: 20160130
  18. LAROXYL [Suspect]
     Active Substance: AMITRIPTYLINE
     Route: 065
     Dates: start: 20160131

REACTIONS (1)
  - Stevens-Johnson syndrome [Not Recovered/Not Resolved]

NARRATIVE: CASE EVENT DATE: 20160204
